FAERS Safety Report 15027004 (Version 1)
Quarter: 2018Q2

REPORT INFORMATION
  Report Type: Spontaneous
  Country: DK (occurrence: DK)
  Receive Date: 20180619
  Receipt Date: 20180619
  Transmission Date: 20180711
  Serious: Yes (Other)
  Sender: FDA-Public Use
  Company Number: DK-RECORDATI RARE DISEASES INC.-DK-R13005-18-00156

PATIENT
  Age: 2 Year
  Sex: Male

DRUGS (3)
  1. ONCOVIN [Suspect]
     Active Substance: VINCRISTINE SULFATE
     Indication: NEPHROBLASTOMA
     Route: 042
     Dates: start: 2010
  2. DOXORUBICIN [Suspect]
     Active Substance: DOXORUBICIN
     Indication: NEPHROBLASTOMA
     Route: 065
     Dates: start: 2010
  3. COSMEGEN [Suspect]
     Active Substance: DACTINOMYCIN
     Indication: NEPHROBLASTOMA
     Route: 065
     Dates: start: 2010

REACTIONS (12)
  - Brain injury [Unknown]
  - Loss of personal independence in daily activities [Unknown]
  - Headache [Unknown]
  - Flank pain [Unknown]
  - Pain [Unknown]
  - Dyspraxia [Unknown]
  - Speech disorder developmental [Unknown]
  - Social anxiety disorder [Unknown]
  - Cognitive disorder [Unknown]
  - Fatigue [Unknown]
  - Pyrexia [Unknown]
  - Memory impairment [Unknown]

NARRATIVE: CASE EVENT DATE: 201011
